FAERS Safety Report 5328826-0 (Version None)
Quarter: 2007Q2

REPORT INFORMATION
  Report Type: 
  Country: None (occurrence: None)
  Receive Date: 20070518
  Receipt Date: 20070516
  Transmission Date: 20071010
  Serious: Yes (Life-Threatening)
  Sender: FDA-Public Use
  Company Number: PHEH2007US07050

PATIENT
  Age: 36 Year
  Sex: Female

DRUGS (1)
  1. ELIDEL [Suspect]
     Indication: ECZEMA
     Dosage: ^ON AND OFF^
     Route: 061
     Dates: start: 20040101

REACTIONS (3)
  - B-CELL LYMPHOMA [None]
  - CHEST PAIN [None]
  - MASS [None]
